FAERS Safety Report 7908059-1 (Version None)
Quarter: 2011Q4

REPORT INFORMATION
  Report Type: 
  Country: None (occurrence: None)
  Receive Date: 20111111
  Receipt Date: 20111105
  Transmission Date: 20120403
  Serious: Yes (Hospitalization)
  Sender: FDA-Public Use
  Company Number: IN-BRISTOL-MYERS SQUIBB COMPANY-16216756

PATIENT
  Age: 69 Year
  Sex: Male
  Weight: 90 kg

DRUGS (2)
  1. ONGLYZA [Suspect]
     Indication: TYPE 2 DIABETES MELLITUS
     Dates: start: 20111004
  2. HUMULIN 70/30 [Suspect]
     Dosage: 1DF:36 UNITS
     Dates: start: 20111104

REACTIONS (5)
  - RESTLESSNESS [None]
  - BLOOD PRESSURE INCREASED [None]
  - EYE SWELLING [None]
  - SWELLING FACE [None]
  - LOCAL SWELLING [None]
